FAERS Safety Report 17486342 (Version 1)
Quarter: 2020Q1

REPORT INFORMATION
  Report Type: Spontaneous
  Country: GR (occurrence: GR)
  Receive Date: 20200303
  Receipt Date: 20200303
  Transmission Date: 20200409
  Serious: Yes (Hospitalization, Other)
  Sender: FDA-Public Use
  Company Number: GR-AMGEN-GRCNI2020034572

PATIENT
  Age: 71 Year
  Sex: Female
  Weight: 98 kg

DRUGS (12)
  1. TRASTUZUMAB EMTANSINE [Suspect]
     Active Substance: ADO-TRASTUZUMAB EMTANSINE
     Indication: BREAST CANCER
     Dosage: 270 MILLIGRAM, Q3WK
     Route: 042
     Dates: start: 20170726
  2. LONALGAL [Concomitant]
     Active Substance: ACETAMINOPHEN\CODEINE PHOSPHATE
     Dosage: UNK
  3. CALCIORAL D3 [Concomitant]
     Dosage: UNK
     Dates: start: 20171218
  4. LAPATINIB [Suspect]
     Active Substance: LAPATINIB
     Indication: BREAST CANCER
     Dosage: 1250 MILLIGRAM, QD
     Route: 048
     Dates: start: 20180618
  5. DOCETAXEL. [Suspect]
     Active Substance: DOCETAXEL
     Indication: BREAST CANCER
     Dosage: 160 MILLIGRAM, Q3WK
     Route: 042
     Dates: start: 20161025
  6. PERTUZUMAB. [Suspect]
     Active Substance: PERTUZUMAB
     Indication: BREAST CANCER
     Dosage: 840 MILLIGRAM, Q3WK
     Route: 042
     Dates: start: 20161117
  7. T4 [Concomitant]
     Active Substance: LEVOTHYROXINE
     Dosage: UNK
     Dates: start: 20090615
  8. T4 [Concomitant]
     Active Substance: LEVOTHYROXINE
     Dosage: UNK
     Dates: start: 20090615
  9. CAPECITABINE. [Suspect]
     Active Substance: CAPECITABINE
     Indication: BREAST CANCER
     Dosage: 2000 MILLIGRAM
     Route: 048
     Dates: start: 20180618
  10. GEMCITABINE. [Suspect]
     Active Substance: GEMCITABINE
     Indication: BREAST CANCER
     Dosage: 2000 MILLIGRAM
     Route: 042
     Dates: start: 20190510, end: 20190828
  11. ZOMETA [Concomitant]
     Active Substance: ZOLEDRONIC ACID
     Dosage: UNK
     Dates: start: 20161018
  12. TRASTUZUMAB. [Suspect]
     Active Substance: TRASTUZUMAB
     Indication: BREAST CANCER
     Dosage: 780 MILLIGRAM, Q3WK
     Route: 042
     Dates: start: 20161025

REACTIONS (2)
  - Cerebrovascular accident [Recovered/Resolved]
  - Off label use [Unknown]

NARRATIVE: CASE EVENT DATE: 20190915
